FAERS Safety Report 4580787-8 (Version None)
Quarter: 2005Q1

REPORT INFORMATION
  Report Type: 
  Country: None (occurrence: None)
  Receive Date: 20050214
  Receipt Date: 20040604
  Transmission Date: 20050727
  Serious: No
  Sender: FDA-Public Use
  Company Number: US-GLAXOSMITHKLINE-A0513445A

PATIENT
  Age: 62 Year
  Sex: Female

DRUGS (2)
  1. LAMICTAL [Suspect]
     Indication: DEPRESSION
     Dosage: 300MG PER DAY
     Route: 048
  2. TRAZODONE [Concomitant]

REACTIONS (4)
  - INFLAMMATION OF WOUND [None]
  - PARAESTHESIA [None]
  - PRURITUS [None]
  - WOUND COMPLICATION [None]
